FAERS Safety Report 5643000-6 (Version None)
Quarter: 2008Q1

REPORT INFORMATION
  Report Type: 
  Country: None (occurrence: None)
  Receive Date: 20080228
  Receipt Date: 20080220
  Transmission Date: 20080703
  Serious: Yes (Other)
  Sender: FDA-Public Use
  Company Number: B0509881A

PATIENT
  Age: 78 Year
  Sex: Female
  Weight: 65 kg

DRUGS (17)
  1. CLAVAMOX [Suspect]
     Indication: RESPIRATORY TRACT INFECTION
     Route: 048
     Dates: start: 20071214, end: 20071215
  2. SENSODYNE-F [Concomitant]
  3. UNKNOWN [Concomitant]
     Route: 048
  4. MANNITOL [Concomitant]
     Route: 048
  5. SENNA EXTRACT [Concomitant]
     Route: 048
  6. PHENYTOIN SODIUM [Concomitant]
     Indication: EPILEPSY
     Dosage: 225MG PER DAY
     Route: 048
  7. NICERGOLINE [Concomitant]
     Dosage: 20MG PER DAY
     Route: 048
  8. FOLIC ACID [Concomitant]
     Route: 048
  9. DIPYRIDAMOLE [Concomitant]
     Route: 048
  10. ACETYLSALICYLIC ACID [Concomitant]
     Route: 048
  11. MELPERONE HYDROCHLORIDE [Concomitant]
     Dosage: 25MG PER DAY
     Route: 048
  12. ESTAZOLAM [Concomitant]
     Dosage: 2MG PER DAY
     Route: 048
  13. BASSORIN [Concomitant]
     Route: 048
  14. RHAMNUS PURSHIANA [Concomitant]
     Route: 048
  15. LEVOFLOXACIN [Concomitant]
  16. UNKNOWN [Concomitant]
  17. CIPROFLOXACIN [Concomitant]

REACTIONS (3)
  - ANGIOEDEMA [None]
  - CIRCUMORAL OEDEMA [None]
  - ERYTHEMA [None]
